FAERS Safety Report 9380384 (Version 2)
Quarter: 2013Q3

REPORT INFORMATION
  Report Type: Spontaneous
  Country: JP (occurrence: JP)
  Receive Date: 20130702
  Receipt Date: 20130813
  Transmission Date: 20140515
  Serious: No
  Sender: FDA-Public Use
  Company Number: JP-SUCAMPO PHARMA AMERICAS, INC-SPI201300464

PATIENT
  Age: 66 Year
  Sex: Female

DRUGS (5)
  1. AMITIZA [Suspect]
     Indication: CONSTIPATION
     Dosage: 24 MCG, BID
     Route: 048
     Dates: start: 20130621, end: 20130621
  2. MAGLAX [Concomitant]
     Indication: CONSTIPATION
     Dosage: UNK, BID
     Route: 048
  3. SENNOSIDE [Concomitant]
     Indication: CONSTIPATION
     Dosage: 12 MG, QD
     Route: 048
  4. VANARL N [Concomitant]
     Indication: PERIPHERAL COLDNESS
     Dosage: 100 MG, BID
     Route: 048
  5. MYSLEE [Concomitant]
     Indication: INSOMNIA
     Dosage: 5 MG, QD
     Route: 048

REACTIONS (5)
  - Blood pressure decreased [Recovered/Resolved]
  - Diarrhoea [Recovered/Resolved]
  - Vomiting [Recovered/Resolved]
  - Chest discomfort [Recovered/Resolved]
  - Nausea [None]
